FAERS Safety Report 4728128-7 (Version None)
Quarter: 2005Q3

REPORT INFORMATION
  Report Type: 
  Country: None (occurrence: None)
  Receive Date: 20050727
  Receipt Date: 20050714
  Transmission Date: 20060218
  Serious: Yes (Hospitalization, Other)
  Sender: FDA-Public Use
  Company Number: 2005093184

PATIENT
  Age: 53 Year
  Sex: Male
  Weight: 83 kg

DRUGS (1)
  1. VIAGRA [Suspect]
     Indication: ERECTILE DYSFUNCTION
     Dosage: 100 MG (100 MG, 1 IN 3 WK), ORAL
     Route: 048
     Dates: start: 20040101

REACTIONS (1)
  - RETINAL DETACHMENT [None]
